FAERS Safety Report 25847656 (Version 1)
Quarter: 2025Q3

REPORT INFORMATION
  Report Type: Spontaneous
  Country: US (occurrence: US)
  Receive Date: 20250925
  Receipt Date: 20250925
  Transmission Date: 20251020
  Serious: Yes (Other)
  Sender: BAYER HEALTHCARE PHARMACEUTICALS INC.
  Company Number: US-BAYER-2025A126788

PATIENT

DRUGS (1)
  1. GADAVIST [Suspect]
     Active Substance: GADOBUTROL

REACTIONS (6)
  - Seizure [None]
  - Pallor [None]
  - Hyperhidrosis [None]
  - Presyncope [None]
  - Dyspnoea [None]
  - Bronchospasm [None]

NARRATIVE: CASE EVENT DATE: 20250810
